FAERS Safety Report 6583975-4 (Version None)
Quarter: 2010Q1

REPORT INFORMATION
  Report Type: 
  Country: None (occurrence: None)
  Receive Date: 20100213
  Receipt Date: 20100213
  Transmission Date: 20100710
  Serious: No
  Sender: FDA-Public Use
  Company Number: None

PATIENT
  Age: 33 Year
  Sex: Male
  Weight: 97.5234 kg

DRUGS (5)
  1. SEROQUEL [Suspect]
     Indication: ANXIETY
     Dosage: 300MG A DAILY PO
     Route: 048
     Dates: start: 20081015, end: 20090201
  2. SEROQUEL [Suspect]
     Indication: DEPRESSION
     Dosage: 300MG A DAILY PO
     Route: 048
     Dates: start: 20081015, end: 20090201
  3. ABILIFY [Concomitant]
  4. LITHIPID [Concomitant]
  5. PRESYIQUE [Concomitant]

REACTIONS (17)
  - ACNE [None]
  - ASTHENIA [None]
  - BLOOD CREATINE PHOSPHOKINASE INCREASED [None]
  - DERMATITIS [None]
  - DRUG INTOLERANCE [None]
  - DYSKINESIA [None]
  - EYE MOVEMENT DISORDER [None]
  - FATIGUE [None]
  - MUSCLE SPASMS [None]
  - MUSCLE TWITCHING [None]
  - MUSCULAR WEAKNESS [None]
  - MYALGIA [None]
  - RASH ERYTHEMATOUS [None]
  - SCAR [None]
  - SKIN BURNING SENSATION [None]
  - SKIN EXFOLIATION [None]
  - SKIN HYPERTROPHY [None]
